FAERS Safety Report 4385692-8 (Version None)
Quarter: 2004Q2

REPORT INFORMATION
  Report Type: 
  Country: None (occurrence: None)
  Receive Date: 20040625
  Receipt Date: 20040625
  Transmission Date: 20050107
  Serious: Yes (Death)
  Sender: FDA-Public Use
  Company Number: None

PATIENT
  Age: 61 Year
  Sex: Female

DRUGS (1)
  1. MORPHINE [Suspect]
     Indication: NEPHROSTOMY TUBE PLACEMENT
     Dosage: PCA PUMP IV
     Route: 042
     Dates: start: 20030715, end: 20030717

REACTIONS (7)
  - ASPIRATION [None]
  - DEVICE FAILURE [None]
  - HYPOTENSION [None]
  - POST PROCEDURAL COMPLICATION [None]
  - RESPIRATORY DEPRESSION [None]
  - URETHRAL OBSTRUCTION [None]
  - UROSEPSIS [None]
